FAERS Safety Report 6030602-0 (Version None)
Quarter: 2009Q1

REPORT INFORMATION
  Report Type: 
  Country: None (occurrence: None)
  Receive Date: 20090107
  Receipt Date: 20090105
  Transmission Date: 20090719
  Serious: Yes (Hospitalization)
  Sender: FDA-Public Use
  Company Number: CA-AMGEN-KDL287163

PATIENT
  Sex: Male

DRUGS (2)
  1. ENBREL [Suspect]
     Indication: ANKYLOSING SPONDYLITIS
     Route: 058
     Dates: start: 20080110
  2. TYLENOL (CAPLET) [Concomitant]

REACTIONS (12)
  - ANKYLOSING SPONDYLITIS [None]
  - ASTHENIA [None]
  - BACK PAIN [None]
  - CHEST PAIN [None]
  - DRY SKIN [None]
  - DYSPNOEA [None]
  - HEPATIC ENZYME INCREASED [None]
  - JAUNDICE [None]
  - RASH PRURITIC [None]
  - SKIN HAEMORRHAGE [None]
  - URINE ANALYSIS ABNORMAL [None]
  - VOMITING [None]
